FAERS Safety Report 11691479 (Version 2)
Quarter: 2016Q1

REPORT INFORMATION
  Report Type: Report from Study
  Country: FR (occurrence: FR)
  Receive Date: 20151102
  Receipt Date: 20160218
  Transmission Date: 20160525
  Serious: Yes (Hospitalization, Other)
  Sender: FDA-Public Use
  Company Number: PHHY2015FR139352

PATIENT
  Age: 14 Year
  Sex: Female
  Weight: 33.5 kg

DRUGS (1)
  1. SOMATROPIN [Suspect]
     Active Substance: SOMATROPIN
     Indication: SMALL FOR DATES BABY
     Dosage: 1.5 MG, QD
     Route: 065
     Dates: start: 20141211

REACTIONS (3)
  - Appendicitis [Recovered/Resolved]
  - Presyncope [Unknown]
  - Pelvic pain [Unknown]

NARRATIVE: CASE EVENT DATE: 20150115
